FAERS Safety Report 12114600 (Version 2)
Quarter: 2016Q1

REPORT INFORMATION
  Report Type: Report from Study
  Country: DE (occurrence: DE)
  Receive Date: 20160225
  Receipt Date: 20160310
  Transmission Date: 20160526
  Serious: Yes (Hospitalization, Other)
  Sender: FDA-Public Use
  Company Number: DE-JNJFOC-20160219990

PATIENT
  Age: 4 Decade
  Sex: Male
  Weight: 86.7 kg

DRUGS (1)
  1. SIMPONI [Suspect]
     Active Substance: GOLIMUMAB
     Indication: PSORIATIC ARTHROPATHY
     Route: 058
     Dates: start: 20151126, end: 20160126

REACTIONS (2)
  - Pneumonia [Recovered/Resolved]
  - Otitis media chronic [Unknown]

NARRATIVE: CASE EVENT DATE: 20160209
